FAERS Safety Report 6532201-0 (Version None)
Quarter: 2010Q1

REPORT INFORMATION
  Report Type: 
  Country: None (occurrence: None)
  Receive Date: 20100107
  Receipt Date: 20100107
  Transmission Date: 20100710
  Serious: No
  Sender: FDA-Public Use
  Company Number: None

PATIENT
  Sex: Male

DRUGS (2)
  1. PEGASYS [Suspect]
     Indication: HEPATITIS C
     Dosage: 180MCG/0.5ML ONCE Q WEEK SQ
     Route: 058
     Dates: start: 20091113, end: 20091223
  2. RIBAVIRIN [Suspect]
     Indication: HEPATITIS C
     Dosage: 600 MG-AM/800 MG-PM BID PO
     Route: 048
     Dates: start: 20091113, end: 20091223

REACTIONS (1)
  - PNEUMONIA [None]
